FAERS Safety Report 8063374-9 (Version None)
Quarter: 2012Q1

REPORT INFORMATION
  Report Type: 
  Country: None (occurrence: None)
  Receive Date: 20120117
  Receipt Date: 20120103
  Transmission Date: 20120608
  Serious: Yes (Death)
  Sender: FDA-Public Use
  Company Number: B0773381A

PATIENT
  Age: 54 Year
  Sex: Female

DRUGS (6)
  1. DIAZEPAM [Suspect]
  2. BUPROPION HYDROCHLORIDE [Suspect]
  3. CYCLOBENZAPRINE HCL [Suspect]
  4. OXYCODONE HCL [Suspect]
  5. DOXYLAMINE SUCCINATE [Suspect]
  6. CITALOPRAM HYDROBROMIDE [Suspect]

REACTIONS (2)
  - CARDIO-RESPIRATORY ARREST [None]
  - DRUG ABUSE [None]
